FAERS Safety Report 14499246 (Version 1)
Quarter: 2018Q1

REPORT INFORMATION
  Report Type: Spontaneous
  Country: US (occurrence: US)
  Receive Date: 20180207
  Receipt Date: 20180207
  Transmission Date: 20180509
  Serious: No
  Sender: FDA-Public Use
  Company Number: US-JAZZ-2017-US-009862

PATIENT
  Sex: Female

DRUGS (7)
  1. BUPIVACAINE. [Suspect]
     Active Substance: BUPIVACAINE
     Indication: COMPLEX REGIONAL PAIN SYNDROME
     Route: 037
  2. PRIALT [Suspect]
     Active Substance: ZICONOTIDE ACETATE
     Dosage: UNKNOWN DOSE
     Route: 037
  3. CYMBALTA [Concomitant]
     Active Substance: DULOXETINE HYDROCHLORIDE
     Indication: COMPLEX REGIONAL PAIN SYNDROME
  4. CYMBALTA [Concomitant]
     Active Substance: DULOXETINE HYDROCHLORIDE
     Indication: DEPRESSION
  5. PRIALT [Suspect]
     Active Substance: ZICONOTIDE ACETATE
     Dosage: .27?G, QH
     Route: 037
  6. MORPHINE [Suspect]
     Active Substance: MORPHINE
     Indication: COMPLEX REGIONAL PAIN SYNDROME
     Route: 037
  7. PRIALT [Suspect]
     Active Substance: ZICONOTIDE ACETATE
     Indication: COMPLEX REGIONAL PAIN SYNDROME
     Dosage: .417?G, QH
     Route: 037
     Dates: start: 2014

REACTIONS (5)
  - Paranoia [Unknown]
  - Thinking abnormal [Unknown]
  - Cognitive disorder [Unknown]
  - Affect lability [Unknown]
  - Hallucinations, mixed [Not Recovered/Not Resolved]
